FAERS Safety Report 4483558-6 (Version None)
Quarter: 2004Q4

REPORT INFORMATION
  Report Type: 
  Country: None (occurrence: None)
  Receive Date: 20041021
  Receipt Date: 20041021
  Transmission Date: 20050328
  Serious: Yes (Life-Threatening)
  Sender: FDA-Public Use
  Company Number: None

PATIENT
  Age: 52 Year
  Sex: Female
  Weight: 58.9676 kg

DRUGS (6)
  1. MEGACE [Suspect]
     Indication: MENORRHAGIA
     Dosage: 40 MG BID (AM/PM)
     Dates: start: 20040527
  2. MEGACE [Suspect]
     Indication: MENSTRUAL DISORDER
     Dosage: 40 MG BID (AM/PM)
     Dates: start: 20040527
  3. MEGACE [Suspect]
     Indication: MENORRHAGIA
     Dosage: 40 MG BID (AM/PM)
     Dates: start: 20040826
  4. MEGACE [Suspect]
     Indication: MENSTRUAL DISORDER
     Dosage: 40 MG BID (AM/PM)
     Dates: start: 20040826
  5. LOVENOX [Concomitant]
  6. COUMADIN [Concomitant]

REACTIONS (11)
  - ABDOMINAL DISTENSION [None]
  - ARTERIAL THROMBOSIS LIMB [None]
  - CONDITION AGGRAVATED [None]
  - HAEMORRHAGE [None]
  - HYSTERECTOMY [None]
  - INFLAMMATION [None]
  - METRORRHAGIA [None]
  - PHLEBOTHROMBOSIS [None]
  - SWELLING [None]
  - THROMBOSIS [None]
  - UTERINE LEIOMYOMA [None]
